FAERS Safety Report 9825833 (Version 1)
Quarter: 2013Q4

REPORT INFORMATION
  Report Type: Spontaneous
  Country: US (occurrence: None)
  Receive Date: 20131223
  Receipt Date: 20131223
  Transmission Date: 20140711
  Serious: Yes (Other)
  Sender: FDA-Public Use
  Company Number: 217876LEO

PATIENT
  Sex: Female

DRUGS (5)
  1. PICATO [Suspect]
     Indication: ACTINIC KERATOSIS
     Dosage: TOPICAL
     Route: 061
     Dates: start: 20120529, end: 20120530
  2. CONCERTA (METHYLPHENIDATE HYDROCHLORIDE) [Concomitant]
  3. SERTRALINE (SERTRALINE) [Concomitant]
  4. BUPROPION (BUPROPION HYDROCHLORIDE) [Concomitant]
  5. LEVOTHYROXINE (LEVOTHYROXINE) [Concomitant]

REACTIONS (6)
  - Application site erythema [None]
  - Application site scab [None]
  - Application site vesicles [None]
  - Drug administered at inappropriate site [None]
  - Off label use [None]
  - Drug ineffective [None]
